FAERS Safety Report 18710314 (Version 1)
Quarter: 2021Q1

REPORT INFORMATION
  Report Type: Report from Study
  Country: None (occurrence: US)
  Receive Date: 20210106
  Receipt Date: 20210106
  Transmission Date: 20210419
  Serious: Yes (Other)
  Sender: FDA-Public Use
  Company Number: US-ABBVIE-21K-163-3718253-00

PATIENT
  Sex: Male

DRUGS (1)
  1. RINVOQ [Suspect]
     Active Substance: UPADACITINIB
     Indication: RHEUMATOID ARTHRITIS
     Route: 048
     Dates: end: 2020

REACTIONS (5)
  - Pain [Recovering/Resolving]
  - Foot operation [Recovering/Resolving]
  - Decreased gait velocity [Recovering/Resolving]
  - Foot operation [Recovering/Resolving]
  - Disability [Unknown]

NARRATIVE: CASE EVENT DATE: 2020
